FAERS Safety Report 22130899 (Version 1)
Quarter: 2023Q1

REPORT INFORMATION
  Report Type: Spontaneous
  Country: DE (occurrence: None)
  Receive Date: 20230323
  Receipt Date: 20230323
  Transmission Date: 20230417
  Serious: Yes (Hospitalization, Other)
  Sender: FDA-Public Use
  Company Number: 2023A066145

PATIENT
  Age: 58 Year
  Sex: Male

DRUGS (4)
  1. BENRALIZUMAB [Suspect]
     Active Substance: BENRALIZUMAB
     Route: 058
     Dates: start: 201905, end: 202006
  2. TEZEPELUMAB [Suspect]
     Active Substance: TEZEPELUMAB
     Dates: start: 202211
  3. OMALIZUMAB [Concomitant]
     Active Substance: OMALIZUMAB
     Dates: start: 201808, end: 201903
  4. DUPILUMAB [Concomitant]
     Active Substance: DUPILUMAB
     Dates: start: 202009, end: 202209

REACTIONS (3)
  - Asthma [Unknown]
  - Chronic sinusitis [Unknown]
  - Hypersensitivity [Unknown]

NARRATIVE: CASE EVENT DATE: 20220101
